FAERS Safety Report 9170590 (Version 1)
Quarter: 2013Q1

REPORT INFORMATION
  Report Type: Spontaneous
  Country: US (occurrence: None)
  Receive Date: 20130312
  Receipt Date: 20130312
  Transmission Date: 20140127
  Serious: Yes (Hospitalization)
  Sender: FDA-Public Use
  Company Number: 2013HINLIT0036

PATIENT
  Age: 50 Year
  Sex: Male

DRUGS (4)
  1. LEVETIRACETAM [Suspect]
     Indication: EPILEPSY
     Route: 048
  2. ESOMEPRAZOLE (ESOMEPRAZOLE) [Concomitant]
  3. GABAPENTH (GABAPENTIN) [Concomitant]
  4. VALPROIC ACID (VALPROIC ACID) [Concomitant]

REACTIONS (4)
  - Overdose [None]
  - Substance-induced psychotic disorder [None]
  - Pruritus [None]
  - Scratch [None]
